FAERS Safety Report 18444799 (Version 2)
Quarter: 2021Q1

REPORT INFORMATION
  Report Type: Spontaneous
  Country: JP (occurrence: JP)
  Receive Date: 20201030
  Receipt Date: 20210113
  Transmission Date: 20210419
  Serious: Yes (Other)
  Sender: FDA-Public Use
  Company Number: JP-GLAXOSMITHKLINE-JP2020212520

PATIENT
  Age: 6 Decade
  Sex: Male

DRUGS (1)
  1. REQUIP [Suspect]
     Active Substance: ROPINIROLE HYDROCHLORIDE
     Dosage: 6 MG, QD
     Route: 048

REACTIONS (4)
  - Disease progression [Unknown]
  - Dysphagia [Unknown]
  - Primary cerebellar degeneration [Unknown]
  - Intercepted product administration error [Unknown]
